FAERS Safety Report 15242385 (Version 1)
Quarter: 2018Q3

REPORT INFORMATION
  Report Type: Report from Study
  Country: BE (occurrence: BE)
  Receive Date: 20180806
  Receipt Date: 20180806
  Transmission Date: 20181010
  Serious: Yes (Other)
  Sender: FDA-Public Use
  Company Number: BE-TEVA-2018-BE-935151

PATIENT
  Age: 57 Year
  Sex: Male
  Weight: 64 kg

DRUGS (7)
  1. MYCOPHENOLATE MOFETIL. [Concomitant]
     Active Substance: MYCOPHENOLATE MOFETIL
     Dosage: 1000 UNITS NOT REPORTED, UNKNOWN FREQ.
     Route: 065
  2. MYCOPHENOLATE MOFETIL. [Concomitant]
     Active Substance: MYCOPHENOLATE MOFETIL
     Indication: IMMUNOSUPPRESSION
     Dosage: 2000 UNITS NOT REPORTED, UNKNOWN FREQ.?FORMULATION UNKNOWN
     Route: 065
  3. METHYLPREDNISOLON                  /00049601/ [Concomitant]
     Active Substance: METHYLPREDNISOLONE
     Dosage: 4 UNITS REPORTED, UNKNOWN FREQ.
     Route: 065
  4. MYCOPHENOLATE MOFETIL. [Concomitant]
     Active Substance: MYCOPHENOLATE MOFETIL
     Dosage: 250 UNITS NOT REPORTED, UNKNOWN FREQ
     Route: 065
  5. MYCOPHENOLATE MOFETIL. [Concomitant]
     Active Substance: MYCOPHENOLATE MOFETIL
     Dosage: 500 UNITS NOT REPORTED, UNKNOWN FREQ.
     Route: 065
  6. METHYLPREDNISOLON                  /00049601/ [Concomitant]
     Active Substance: METHYLPREDNISOLONE
     Indication: IMMUNOSUPPRESSION
     Dosage: 8 UNITS REPORTED, UNKNOWN FREQ.?FORMULATION UNKNOWN
     Route: 065
  7. TACROLIMUS. [Suspect]
     Active Substance: TACROLIMUS
     Indication: RENAL TRANSPLANT
     Dosage: 5 UNITS NOT REPORTED, ONCE DAILY
     Route: 065

REACTIONS (3)
  - Influenza [Not Recovered/Not Resolved]
  - Leukopenia [Not Recovered/Not Resolved]
  - Cytomegalovirus infection [Not Recovered/Not Resolved]

NARRATIVE: CASE EVENT DATE: 20170113
